FAERS Safety Report 4718421-6 (Version None)
Quarter: 2005Q3

REPORT INFORMATION
  Report Type: 
  Country: None (occurrence: None)
  Receive Date: 20050719
  Receipt Date: 20041210
  Transmission Date: 20060218
  Serious: Yes (Other)
  Sender: FDA-Public Use
  Company Number: 2004108983

PATIENT
  Age: 76 Year
  Sex: Female
  Weight: 68.0396 kg

DRUGS (5)
  1. CELECOXIB (CELECOXIB) [Suspect]
     Indication: ARTHRITIS
     Dosage: (200 MG)
  2. WARFARIN SODIUM [Concomitant]
  3. ESTROGENS CONJUGATED [Concomitant]
  4. ANTIHYPERTENSIVES [Concomitant]
  5. VITAMINS [Concomitant]

REACTIONS (3)
  - CEREBROVASCULAR ACCIDENT [None]
  - DIARRHOEA [None]
  - GASTRIC DISORDER [None]
